FAERS Safety Report 7816028-5 (Version None)
Quarter: 2011Q4

REPORT INFORMATION
  Report Type: 
  Country: None (occurrence: None)
  Receive Date: 20111014
  Receipt Date: 20110921
  Transmission Date: 20120403
  Serious: Yes (Other)
  Sender: FDA-Public Use
  Company Number: US-ROCHE-1000999

PATIENT
  Sex: Male

DRUGS (3)
  1. COPEGUS [Suspect]
     Indication: HEPATITIS C
  2. PEGASYS [Suspect]
     Indication: HEPATITIS C
     Dates: start: 20020101
  3. PEGASYS [Suspect]
     Dates: start: 20030101

REACTIONS (4)
  - CHEST PAIN [None]
  - PAIN [None]
  - CARDIAC DISORDER [None]
  - CARDIAC FLUTTER [None]
